FAERS Safety Report 6154853-X (Version None)
Quarter: 2009Q2

REPORT INFORMATION
  Report Type: 
  Country: None (occurrence: None)
  Receive Date: 20090414
  Receipt Date: 20090402
  Transmission Date: 20091009
  Serious: Yes (Hospitalization)
  Sender: FDA-Public Use
  Company Number: JP-PFIZER INC-2009196301

PATIENT

DRUGS (12)
  1. PREGABALIN [Suspect]
     Indication: DIABETIC NEUROPATHY
     Dosage: 150 MG, 2X/DAY
     Route: 048
     Dates: start: 20080917
  2. WARFARIN POTASSIUM [Concomitant]
     Route: 048
  3. ASPIRIN [Concomitant]
     Route: 048
  4. NITOROL R [Concomitant]
     Route: 048
  5. PERSANTINE [Concomitant]
  6. AMARYL [Concomitant]
     Route: 048
  7. BASEN [Concomitant]
     Route: 048
  8. MYSLEE [Concomitant]
     Dosage: UNK
     Route: 048
  9. MEILAX [Concomitant]
     Dosage: UNK
     Route: 048
  10. ADETPHOS [Concomitant]
     Dosage: UNK
     Route: 048
  11. MERISLON [Concomitant]
     Dosage: UNK
     Route: 048
  12. EZETIMIBE [Concomitant]
     Dosage: UNK
     Route: 048
     Dates: start: 20081001

REACTIONS (1)
  - MENIERE'S DISEASE [None]
